FAERS Safety Report 14081678 (Version 1)
Quarter: 2017Q4

REPORT INFORMATION
  Report Type: Spontaneous
  Country: US (occurrence: None)
  Receive Date: 20171012
  Receipt Date: 20171012
  Transmission Date: 20180321
  Serious: No
  Sender: FDA-Public Use
  Company Number: None

PATIENT
  Age: 32 Year
  Sex: Male
  Weight: 106.8 kg

DRUGS (1)
  1. BUPRENORPHINE/NALOXONE [Suspect]
     Active Substance: BUPRENORPHINE\NALOXONE
     Indication: DRUG DEPENDENCE
     Dosage: 8/2 MG BID PO
     Route: 048
     Dates: start: 20160630, end: 20160711

REACTIONS (14)
  - Arthralgia [None]
  - Nausea [None]
  - Mydriasis [None]
  - Tremor [None]
  - Withdrawal syndrome [None]
  - Irritability [None]
  - Agitation [None]
  - Restlessness [None]
  - Bone pain [None]
  - Vomiting [None]
  - Hyperhidrosis [None]
  - Anxiety [None]
  - Heart rate increased [None]
  - Diarrhoea [None]

NARRATIVE: CASE EVENT DATE: 20160711
